FAERS Safety Report 8153347-X (Version None)
Quarter: 2012Q1

REPORT INFORMATION
  Report Type: 
  Country: None (occurrence: None)
  Receive Date: 20120221
  Receipt Date: 20120208
  Transmission Date: 20120608
  Serious: Yes (Other)
  Sender: FDA-Public Use
  Company Number: US-ROCHE-1041553

PATIENT
  Sex: Male

DRUGS (7)
  1. PEGASYS [Suspect]
     Indication: PRODUCT USED FOR UNKNOWN INDICATION
  2. AMLODIPINE [Concomitant]
  3. WELLBUTRIN [Concomitant]
  4. RIBAVIRIN [Suspect]
     Indication: PRODUCT USED FOR UNKNOWN INDICATION
  5. VICTRELIS [Suspect]
     Indication: HEPATITIS C
     Route: 048
     Dates: start: 20110809, end: 20111004
  6. LOVAZA [Concomitant]
  7. NEXIUM [Concomitant]

REACTIONS (5)
  - VOMITING [None]
  - PHARYNGEAL OEDEMA [None]
  - SWOLLEN TONGUE [None]
  - DRUG INEFFECTIVE [None]
  - EPISTAXIS [None]
